FAERS Safety Report 16307929 (Version 2)
Quarter: 2019Q2

REPORT INFORMATION
  Report Type: Report from Study
  Country: None (occurrence: SE)
  Receive Date: 20190514
  Receipt Date: 20190515
  Transmission Date: 20190711
  Serious: Yes (Hospitalization)
  Sender: FDA-Public Use
  Company Number: SE-ABBVIE-19S-150-2774240-00

PATIENT
  Age: 76 Year
  Sex: Male

DRUGS (2)
  1. DUODOPA [Suspect]
     Active Substance: CARBIDOPA\LEVODOPA
     Route: 050
     Dates: start: 20190430, end: 20190509
  2. DUODOPA [Suspect]
     Active Substance: CARBIDOPA\LEVODOPA
     Indication: PARKINSON^S DISEASE
     Route: 050
     Dates: start: 20190206, end: 2019

REACTIONS (12)
  - Medical device site injury [Unknown]
  - Stoma site odour [Unknown]
  - Musculoskeletal stiffness [Unknown]
  - Gastrointestinal stoma complication [Unknown]
  - Device loosening [Unknown]
  - Stoma site extravasation [Unknown]
  - Stoma site infection [Unknown]
  - Stoma site discharge [Recovered/Resolved]
  - Stoma site haemorrhage [Recovered/Resolved]
  - Mobility decreased [Unknown]
  - Cognitive disorder [Unknown]
  - Stoma site pain [Unknown]

NARRATIVE: CASE EVENT DATE: 2019
